FAERS Safety Report 25550373 (Version 1)
Quarter: 2025Q3

REPORT INFORMATION
  Report Type: Spontaneous
  Country: EU (occurrence: EU)
  Receive Date: 20250714
  Receipt Date: 20250714
  Transmission Date: 20251020
  Serious: Yes (Hospitalization, Other)
  Sender: Norvium Bioscience
  Company Number: EU-Norvium Bioscience LLC-080390

PATIENT
  Age: 26 Year
  Sex: Male
  Weight: 98.6 kg

DRUGS (4)
  1. MESALAMINE [Interacting]
     Active Substance: MESALAMINE
     Indication: Crohn^s disease
  2. AZATHIOPRINE [Interacting]
     Active Substance: AZATHIOPRINE
     Indication: Crohn^s disease
     Dosage: DOSE INCREASED FROM 44 TO 66 MG/M2
  3. PREDNISONE [Concomitant]
     Active Substance: PREDNISONE
     Indication: Crohn^s disease
  4. AZATHIOPRINE [Interacting]
     Active Substance: AZATHIOPRINE
     Indication: Crohn^s disease

REACTIONS (3)
  - Bone marrow failure [Recovering/Resolving]
  - Febrile neutropenia [Recovering/Resolving]
  - Drug interaction [Unknown]
